FAERS Safety Report 8592260-0 (Version None)
Quarter: 2012Q3

REPORT INFORMATION
  Report Type: 
  Country: None (occurrence: None)
  Receive Date: 20120814
  Receipt Date: 20120808
  Transmission Date: 20120928
  Serious: Yes (Death, Other)
  Sender: FDA-Public Use
  Company Number: FR-CELGENEUS-056-21880-12040067

PATIENT

DRUGS (1)
  1. REVLIMID [Suspect]
     Indication: MYELOMA RECURRENCE
     Route: 048

REACTIONS (5)
  - INFECTION [None]
  - HAEMATOTOXICITY [None]
  - GASTROINTESTINAL DISORDER [None]
  - MULTIPLE MYELOMA [None]
  - THROMBOSIS [None]
